FAERS Safety Report 8417268-7 (Version None)
Quarter: 2012Q2

REPORT INFORMATION
  Report Type: 
  Country: None (occurrence: None)
  Receive Date: 20120606
  Receipt Date: 20120605
  Transmission Date: 20120825
  Serious: No
  Sender: FDA-Public Use
  Company Number: US-BAYER-2012-055960

PATIENT
  Sex: Female

DRUGS (5)
  1. CALCIUM [Concomitant]
     Dosage: 500
  2. VITAMIN D [Concomitant]
     Dosage: 400
  3. FISH OIL [Concomitant]
  4. OXYBUTYNIN [Concomitant]
     Dosage: 5 MG, UNK
  5. BETASERON [Suspect]
     Dosage: 0.25 ?G/ML, QOD
     Route: 058

REACTIONS (1)
  - INJECTION SITE ERYTHEMA [None]
